FAERS Safety Report 9334872 (Version 2)
Quarter: 2013Q4

REPORT INFORMATION
  Report Type: Spontaneous
  Country: US (occurrence: US)
  Receive Date: 20130606
  Receipt Date: 20131008
  Transmission Date: 20140711
  Serious: No
  Sender: FDA-Public Use
  Company Number: US-AMGEN-USASP2013037039

PATIENT
  Age: 87 Year
  Sex: Female
  Weight: 84.9 kg

DRUGS (17)
  1. PROLIA [Suspect]
     Indication: OSTEOPOROSIS POSTMENOPAUSAL
     Dosage: 60 MG, Q6MO
     Route: 058
     Dates: start: 20121205
  2. PLAVIX [Concomitant]
     Dosage: 75 MG, QD
  3. SYNTHROID [Concomitant]
     Dosage: 125 MUG, QD
  4. ASTELIN                            /00884002/ [Concomitant]
  5. ALBUTEROL                          /00139502/ [Concomitant]
  6. CLARINEX                           /01202601/ [Concomitant]
  7. XYZAL [Concomitant]
  8. FISH OIL [Concomitant]
  9. CALCIUM [Concomitant]
  10. VESICARE [Concomitant]
     Dosage: 5 MG, QD
  11. CALTRATE + D                       /00944201/ [Concomitant]
     Dosage: 400 MG, QD
  12. TRIAMCINOLONE ACETONIDE [Concomitant]
     Dosage: 60 G, BID
  13. FLUTICASONE PROPIONATE [Concomitant]
     Dosage: 50 MUG, BID
  14. LEVOCETIRIZINE [Concomitant]
     Dosage: 5 MG, QD
  15. LIPOFLAVONOID                      /00457001/ [Concomitant]
     Dosage: UNK UNK, TID
     Route: 048
  16. VITAMIN D3 [Concomitant]
     Dosage: 2000 UNIT, QD
     Route: 048
  17. ACETAMINOPHEN [Concomitant]
     Dosage: 325 MG, AS NECESSARY
     Route: 048

REACTIONS (3)
  - Fall [Unknown]
  - Contusion [Unknown]
  - Dizziness [Recovered/Resolved]
